FAERS Safety Report 8334495-8 (Version None)
Quarter: 2012Q2

REPORT INFORMATION
  Report Type: 
  Country: None (occurrence: None)
  Receive Date: 20120503
  Receipt Date: 20120424
  Transmission Date: 20120825
  Serious: Yes (Hospitalization, Other)
  Sender: FDA-Public Use
  Company Number: US-ASTRAZENECA-2012SE23649

PATIENT
  Age: 932 Month
  Sex: Female

DRUGS (6)
  1. LISINOPRIL [Suspect]
     Route: 048
  2. MULTI-VITAMINS [Concomitant]
  3. CRESTOR [Suspect]
     Route: 048
  4. NORVASC [Concomitant]
  5. AMBIEN [Concomitant]
  6. CARVEDILOL [Concomitant]

REACTIONS (2)
  - VISUAL ACUITY REDUCED [None]
  - OVARIAN CANCER [None]
